FAERS Safety Report 5694720-9 (Version None)
Quarter: 2008Q2

REPORT INFORMATION
  Report Type: 
  Country: None (occurrence: None)
  Receive Date: 20080404
  Receipt Date: 20080328
  Transmission Date: 20081010
  Serious: Yes (Other)
  Sender: FDA-Public Use
  Company Number: B0515170A

PATIENT
  Age: 44 Year
  Sex: Male
  Weight: 53 kg

DRUGS (1)
  1. LAMICTAL [Suspect]
     Indication: EPILEPSY
     Dosage: 100MG TWICE PER DAY
     Route: 048
     Dates: start: 20000101, end: 20070921

REACTIONS (7)
  - CELLULITIS [None]
  - MEMORY IMPAIRMENT [None]
  - NASAL CONGESTION [None]
  - OEDEMA [None]
  - SENSATION OF PRESSURE [None]
  - TINNITUS [None]
  - VISION BLURRED [None]
